FAERS Safety Report 4761510-0 (Version None)
Quarter: 2005Q3

REPORT INFORMATION
  Report Type: 
  Country: None (occurrence: None)
  Receive Date: 20050906
  Receipt Date: 20050830
  Transmission Date: 20060218
  Serious: Yes (Hospitalization)
  Sender: FDA-Public Use
  Company Number: FR-GLAXOSMITHKLINE-B0392203A

PATIENT
  Age: 87 Year
  Sex: Female

DRUGS (15)
  1. CLAMOXYL [Suspect]
     Indication: INFECTION
     Dosage: 1G TWICE PER DAY
     Route: 048
     Dates: start: 20050411, end: 20050413
  2. ALLOPURINOL [Suspect]
     Dosage: 100MG PER DAY
     Route: 048
  3. AMOXYCILLIN SODIUM [Suspect]
     Indication: INFECTION
     Dosage: 1G THREE TIMES PER DAY
     Route: 042
     Dates: start: 20050405, end: 20050411
  4. PIPRAM FORT [Suspect]
     Indication: URINARY TRACT INFECTION
     Dosage: 400MG TWICE PER DAY
     Route: 048
     Dates: start: 20050411, end: 20050413
  5. CEFTRIAXONE [Suspect]
     Indication: INFECTION
     Dosage: 2G PER DAY
     Route: 042
     Dates: start: 20050413, end: 20050422
  6. ROVAMYCINE [Suspect]
     Indication: INFECTION
     Dosage: 3IU6 THREE TIMES PER DAY
     Route: 048
     Dates: start: 20050405, end: 20050413
  7. IZILOX [Concomitant]
     Indication: URINARY TRACT INFECTION
     Route: 065
     Dates: start: 20050413, end: 20050424
  8. KARDEGIC [Concomitant]
     Route: 065
  9. NEORECORMON [Concomitant]
     Route: 065
  10. AMLOR [Concomitant]
     Route: 065
  11. HYPERIUM [Concomitant]
     Route: 065
  12. EUPRESSYL [Concomitant]
     Route: 065
  13. CELECTOL [Concomitant]
     Route: 065
  14. OMEPRAZOLE [Concomitant]
     Route: 065
  15. STILNOX [Concomitant]
     Route: 065

REACTIONS (7)
  - DERMATITIS BULLOUS [None]
  - ECZEMA [None]
  - ORAL PAIN [None]
  - ORAL SOFT TISSUE DISORDER [None]
  - PURPURA [None]
  - SKIN EXFOLIATION [None]
  - STRAWBERRY TONGUE [None]
